FAERS Safety Report 8010493-9 (Version None)
Quarter: 2011Q4

REPORT INFORMATION
  Report Type: 
  Country: None (occurrence: None)
  Receive Date: 20111228
  Receipt Date: 20111223
  Transmission Date: 20120403
  Serious: Yes (Life-Threatening, Hospitalization)
  Sender: FDA-Public Use
  Company Number: DE-SANOFI-AVENTIS-2011SA061017

PATIENT
  Age: 74 Year
  Sex: Male
  Weight: 69 kg

DRUGS (4)
  1. MULTAQ [Suspect]
     Indication: ATRIAL FIBRILLATION
     Route: 048
     Dates: start: 20110830, end: 20110901
  2. BISOPROLOL [Concomitant]
     Route: 048
     Dates: start: 20100101, end: 20110901
  3. JANUMET [Concomitant]
     Route: 048
     Dates: end: 20110901
  4. RAMIPRIL [Concomitant]
     Route: 048
     Dates: start: 20100101, end: 20110901

REACTIONS (10)
  - BLOOD CREATININE INCREASED [None]
  - HYPERKALAEMIA [None]
  - SINUS BRADYCARDIA [None]
  - DIZZINESS [None]
  - TRANSAMINASES INCREASED [None]
  - ASPARTATE AMINOTRANSFERASE INCREASED [None]
  - CARDIOVASCULAR DISORDER [None]
  - DYSPNOEA AT REST [None]
  - ALANINE AMINOTRANSFERASE INCREASED [None]
  - RENAL FAILURE ACUTE [None]
